FAERS Safety Report 9653263 (Version 1)
Quarter: 2013Q4

REPORT INFORMATION
  Report Type: Spontaneous
  Country: US (occurrence: US)
  Receive Date: 20131029
  Receipt Date: 20131029
  Transmission Date: 20140711
  Serious: Yes (Hospitalization)
  Sender: FDA-Public Use
  Company Number: US-BAXTER-2013BAX041657

PATIENT
  Age: 93 Year
  Sex: Male

DRUGS (18)
  1. GAMMAGARD LIQUID [Suspect]
     Indication: MYASTHENIA GRAVIS
     Route: 042
     Dates: start: 20130923, end: 20130923
  2. GAMMAGARD LIQUID [Suspect]
     Indication: OFF LABEL USE
     Route: 042
     Dates: start: 20130924, end: 20130924
  3. GAMMAGARD LIQUID [Suspect]
     Route: 042
     Dates: start: 20131008, end: 20131008
  4. GAMMAGARD LIQUID [Suspect]
     Route: 042
     Dates: start: 20131009, end: 20131009
  5. GAMMAGARD LIQUID [Suspect]
     Route: 042
     Dates: start: 20131010, end: 20131010
  6. GAMMAGARD LIQUID [Suspect]
     Route: 042
     Dates: start: 201210, end: 201212
  7. LEVOTHYROXINE [Concomitant]
     Indication: PRODUCT USED FOR UNKNOWN INDICATION
     Route: 048
  8. SULFAMETHOXAZOLE/TRIMETHOPRIM LIQUID [Concomitant]
     Indication: PRODUCT USED FOR UNKNOWN INDICATION
     Route: 048
  9. NITROSTAT [Concomitant]
     Indication: PRODUCT USED FOR UNKNOWN INDICATION
  10. PREDNISONE [Concomitant]
     Indication: PRODUCT USED FOR UNKNOWN INDICATION
     Route: 048
  11. MESTINON [Concomitant]
     Indication: PRODUCT USED FOR UNKNOWN INDICATION
     Route: 048
  12. CELLCEPT [Concomitant]
     Indication: PRODUCT USED FOR UNKNOWN INDICATION
     Route: 048
  13. TAMSULOSIN [Concomitant]
     Indication: PRODUCT USED FOR UNKNOWN INDICATION
     Route: 048
  14. FINASTERIDE [Concomitant]
     Indication: PRODUCT USED FOR UNKNOWN INDICATION
     Route: 048
  15. TYLENOL [Concomitant]
     Indication: PRODUCT USED FOR UNKNOWN INDICATION
     Route: 065
  16. CHILDREN^S ALLEGRA [Concomitant]
     Indication: PRODUCT USED FOR UNKNOWN INDICATION
     Dosage: 2 TSP
     Route: 048
  17. OFLOXACIN [Concomitant]
     Indication: EAR DISORDER
     Dosage: 6 DROPS
     Route: 065
     Dates: start: 20130820, end: 20130824
  18. CLOTRIMAZOLE [Concomitant]
     Indication: EAR DISORDER
     Route: 065

REACTIONS (2)
  - Dyspnoea [Not Recovered/Not Resolved]
  - Skin reaction [Unknown]
